FAERS Safety Report 9274943 (Version 1)
Quarter: 2013Q2

REPORT INFORMATION
  Report Type: Spontaneous
  Country: US (occurrence: US)
  Receive Date: 20130507
  Receipt Date: 20130507
  Transmission Date: 20140414
  Serious: Yes (Hospitalization)
  Sender: FDA-Public Use
  Company Number: US-BAYER-2013-054786

PATIENT
  Age: 47 Year
  Sex: Female

DRUGS (2)
  1. BEYAZ [Suspect]
  2. HYDROCODONE [Concomitant]

REACTIONS (1)
  - Deep vein thrombosis [Recovered/Resolved]
